FAERS Safety Report 4466810-X (Version None)
Quarter: 2004Q4

REPORT INFORMATION
  Report Type: 
  Country: None (occurrence: None)
  Receive Date: 20041001
  Receipt Date: 20041001
  Transmission Date: 20050328
  Serious: Yes (Disabling)
  Sender: FDA-Public Use
  Company Number: None

PATIENT
  Age: 50 Year
  Sex: Female
  Weight: 70.3075 kg

DRUGS (1)
  1. MIRAPEX [Suspect]
     Indication: PARKINSON'S DISEASE
     Dosage: 1-2 3 X DAILY ORAL
     Route: 048
     Dates: start: 20010401, end: 20041126

REACTIONS (5)
  - ABNORMAL BEHAVIOUR [None]
  - EMOTIONAL DISORDER [None]
  - OBSESSIVE-COMPULSIVE DISORDER [None]
  - PERSONALITY CHANGE [None]
  - SUICIDAL IDEATION [None]
